FAERS Safety Report 4507478-3 (Version None)
Quarter: 2004Q4

REPORT INFORMATION
  Report Type: 
  Country: None (occurrence: None)
  Receive Date: 20041118
  Receipt Date: 20041108
  Transmission Date: 20050328
  Serious: Yes (Other)
  Sender: FDA-Public Use
  Company Number: 2004-03-1333

PATIENT
  Age: 51 Year
  Sex: Female

DRUGS (3)
  1. VIRAFERONPEG [Suspect]
     Indication: HEPATITIS C
     Dosage: 96 MCG QW SUBCUTANEOUS
     Route: 058
     Dates: start: 20011008, end: 20011219
  2. RIBAVIRIN [Suspect]
     Indication: HEPATITIS C
     Dosage: 800 MG QD ORAL
     Route: 048
     Dates: start: 20011008, end: 20011214
  3. HORMONE REPLACEMENT THERAPY [Concomitant]

REACTIONS (20)
  - ANXIETY [None]
  - ASTHENIA [None]
  - DEPRESSION [None]
  - DIARRHOEA [None]
  - DIPLOPIA [None]
  - DRUG ERUPTION [None]
  - DRUG HYPERSENSITIVITY [None]
  - DYSPEPSIA [None]
  - EYE DISORDER [None]
  - FATIGUE [None]
  - GOITRE [None]
  - HEADACHE [None]
  - HYPERTHYROIDISM [None]
  - INTRAOCULAR PRESSURE INCREASED [None]
  - PERIORBITAL OEDEMA [None]
  - PHARYNGOLARYNGEAL PAIN [None]
  - RASH MACULO-PAPULAR [None]
  - SKIN REACTION [None]
  - THYROIDITIS [None]
  - TREATMENT NONCOMPLIANCE [None]
